FAERS Safety Report 6552903-X (Version None)
Quarter: 2010Q1

REPORT INFORMATION
  Report Type: 
  Country: None (occurrence: None)
  Receive Date: 20100122
  Receipt Date: 20100118
  Transmission Date: 20100710
  Serious: Yes (Hospitalization)
  Sender: FDA-Public Use
  Company Number: 2008SP012235

PATIENT
  Age: 70 Year
  Sex: Male

DRUGS (3)
  1. CELESTAMINE TAB [Suspect]
     Dates: start: 20080118, end: 20080125
  2. AUGMENTIN [Suspect]
     Dates: start: 20071101, end: 20071101
  3. SOLUPRED (PREDNISOLONE SODIUM SULFOBENZOATE) [Suspect]
     Dates: start: 20071201, end: 20071201

REACTIONS (1)
  - CYTOLYTIC HEPATITIS [None]
